FAERS Safety Report 18512457 (Version 1)
Quarter: 2020Q4

REPORT INFORMATION
  Report Type: Spontaneous
  Country: US (occurrence: US)
  Receive Date: 20201117
  Receipt Date: 20201117
  Transmission Date: 20210114
  Serious: No
  Sender: FDA-Public Use
  Company Number: US-TEVA-2020-US-1849045

PATIENT
  Age: 21 Year
  Sex: Male

DRUGS (2)
  1. XOPENEX [Concomitant]
     Active Substance: LEVALBUTEROL HYDROCHLORIDE
  2. ALBUTEROL INHALER [Suspect]
     Active Substance: ALBUTEROL
     Indication: PULMONARY FIBROSIS
     Dosage: FORM OF ADMIN: INHALER.
     Route: 065

REACTIONS (1)
  - Reaction to excipient [Unknown]
